FAERS Safety Report 13454821 (Version 1)
Quarter: 2017Q2

REPORT INFORMATION
  Report Type: Spontaneous
  Country: US (occurrence: US)
  Receive Date: 20170418
  Receipt Date: 20170418
  Transmission Date: 20170830
  Serious: No
  Sender: FDA-Public Use
  Company Number: None

PATIENT
  Age: 58 Year
  Sex: Male

DRUGS (1)
  1. STELARA [Suspect]
     Active Substance: USTEKINUMAB
     Indication: PSORIASIS
     Dosage: STELARA PFS 45MG AT WK 0, THEN AT WEEK 4 SQ
     Route: 058
     Dates: start: 20170405, end: 20170407

REACTIONS (5)
  - Insomnia [None]
  - Therapy cessation [None]
  - Pulmonary oedema [None]
  - Dizziness [None]
  - Dyspnoea [None]

NARRATIVE: CASE EVENT DATE: 20170407
